FAERS Safety Report 22260650 (Version 4)
Quarter: 2023Q2

REPORT INFORMATION
  Report Type: Spontaneous
  Country: ES (occurrence: ES)
  Receive Date: 20230427
  Receipt Date: 20230615
  Transmission Date: 20230722
  Serious: Yes (Other)
  Sender: FDA-Public Use
  Company Number: ES-VIIV HEALTHCARE LIMITED-ES2023EME049327

PATIENT
  Age: 59 Year
  Sex: Male

DRUGS (6)
  1. RILPIVIRINE [Suspect]
     Active Substance: RILPIVIRINE
     Indication: Product used for unknown indication
     Dosage: UNK
     Route: 065
     Dates: start: 20230418
  2. CABOTEGRAVIR [Suspect]
     Active Substance: CABOTEGRAVIR
     Indication: Product used for unknown indication
     Dosage: UNK
     Route: 065
     Dates: start: 20230418
  3. DOVATO [Suspect]
     Active Substance: DOLUTEGRAVIR SODIUM\LAMIVUDINE
     Indication: Product used for unknown indication
     Dosage: UNK 50MG/300MG
     Route: 065
  4. SULFAMETHOXAZOLE\TRIMETHOPRIM [Suspect]
     Active Substance: SULFAMETHOXAZOLE\TRIMETHOPRIM
     Indication: Product used for unknown indication
     Dosage: UNK
     Route: 065
  5. PREGABALIN [Suspect]
     Active Substance: PREGABALIN
     Indication: Pain
     Dosage: UNK
     Route: 065
  6. JULUCA [Suspect]
     Active Substance: DOLUTEGRAVIR SODIUM\RILPIVIRINE HYDROCHLORIDE
     Indication: Product used for unknown indication
     Route: 065

REACTIONS (29)
  - Neuropathy peripheral [Not Recovered/Not Resolved]
  - Toxic neuropathy [Unknown]
  - Pneumonia [Unknown]
  - Paraesthesia [Unknown]
  - Pain in extremity [Unknown]
  - Peripheral coldness [Not Recovered/Not Resolved]
  - Rash [Unknown]
  - Anxiety [Unknown]
  - Depression [Unknown]
  - Insomnia [Unknown]
  - Nightmare [Unknown]
  - Self-injurious ideation [Unknown]
  - Gait inability [Unknown]
  - Fatigue [Recovered/Resolved]
  - Weight decreased [Unknown]
  - Dyspepsia [Unknown]
  - Micturition disorder [Recovered/Resolved]
  - Condition aggravated [Unknown]
  - Burning sensation [Unknown]
  - Somnolence [Unknown]
  - Neuralgia [Not Recovered/Not Resolved]
  - Dry skin [Unknown]
  - Diarrhoea [Unknown]
  - Urinary tract infection [Unknown]
  - Prostatitis [Unknown]
  - Muscle spasms [Recovered/Resolved]
  - Hypoaesthesia [Unknown]
  - Skin exfoliation [Unknown]
  - Pain [Recovered/Resolved]
